FAERS Safety Report 7124399-0 (Version None)
Quarter: 2010Q4

REPORT INFORMATION
  Report Type: 
  Country: None (occurrence: None)
  Receive Date: 20101126
  Receipt Date: 20101123
  Transmission Date: 20110411
  Serious: Yes (Other)
  Sender: FDA-Public Use
  Company Number: US-BRISTOL-MYERS SQUIBB COMPANY-15364607

PATIENT
  Age: 68 Year
  Sex: Male

DRUGS (5)
  1. ONGLYZA [Suspect]
     Indication: DIABETES MELLITUS
     Route: 048
     Dates: start: 20100629
  2. LISINOPRIL [Suspect]
     Dates: start: 20050101
  3. ALBUTEROL [Concomitant]
     Dosage: 1 DF = 1 VIAL:NEB
  4. PULMICORT [Concomitant]
     Dosage: 1 VIAL:NEB
  5. TRIAMTERENE AND HYDROCHLOROTHIAZIDE [Concomitant]
     Dosage: 1 DF = 37.5/25 UNITS NOS

REACTIONS (1)
  - ANGIOEDEMA [None]
